FAERS Safety Report 11508886 (Version 1)
Quarter: 2015Q3

REPORT INFORMATION
  Report Type: Spontaneous
  Country: US (occurrence: US)
  Receive Date: 20150915
  Receipt Date: 20150915
  Transmission Date: 20151125
  Serious: Yes (Death, Life-Threatening, Hospitalization)
  Sender: FDA-Public Use
  Company Number: US-BRACCO-012498

PATIENT
  Age: 61 Year
  Sex: Male
  Weight: 94 kg

DRUGS (3)
  1. VALIUM [Concomitant]
     Active Substance: DIAZEPAM
  2. BENADRYL [Concomitant]
     Active Substance: DIPHENHYDRAMINE HYDROCHLORIDE
  3. ISOVUE 370 [Suspect]
     Active Substance: IOPAMIDOL
     Indication: CATHETERISATION CARDIAC
     Route: 013
     Dates: start: 20150811, end: 20150811

REACTIONS (1)
  - Coronary artery thrombosis [Fatal]

NARRATIVE: CASE EVENT DATE: 20150811
